FAERS Safety Report 18264993 (Version 2)
Quarter: 2020Q3

REPORT INFORMATION
  Report Type: Report from Study
  Country: US (occurrence: US)
  Receive Date: 20200914
  Receipt Date: 20200918
  Transmission Date: 20201103
  Serious: Yes (Hospitalization, Other)
  Sender: FDA-Public Use
  Company Number: US-JNJFOC-A-NJ2020-207553

PATIENT
  Age: 53 Year
  Sex: Female
  Weight: 96.25 kg

DRUGS (4)
  1. UPTRAVI [Suspect]
     Active Substance: SELEXIPAG
     Dosage: 200 MCG, BID
     Route: 048
  2. SILDENAFIL CITRATE. [Concomitant]
     Active Substance: SILDENAFIL CITRATE
  3. UPTRAVI [Suspect]
     Active Substance: SELEXIPAG
     Indication: PULMONARY ARTERIAL HYPERTENSION
     Dosage: 400 MCG, BID
     Route: 048
  4. OPSUMIT [Suspect]
     Active Substance: MACITENTAN
     Indication: PULMONARY ARTERIAL HYPERTENSION
     Dosage: 10 MG, QD
     Route: 048

REACTIONS (16)
  - Pulmonary arterial hypertension [Unknown]
  - Renal disorder [Unknown]
  - Pyrexia [Unknown]
  - Haemoglobin decreased [Unknown]
  - Fluid overload [Unknown]
  - SARS-CoV-2 test positive [Recovering/Resolving]
  - Dizziness [Unknown]
  - Fatigue [Recovering/Resolving]
  - Pain [Unknown]
  - Catheter management [Unknown]
  - Insomnia [Unknown]
  - Diarrhoea [Not Recovered/Not Resolved]
  - Liver transplant [Unknown]
  - Nausea [Unknown]
  - Dialysis [Unknown]
  - Abdominal discomfort [Recovering/Resolving]

NARRATIVE: CASE EVENT DATE: 201910
